FAERS Safety Report 4428687-8 (Version None)
Quarter: 2004Q3

REPORT INFORMATION
  Report Type: 
  Country: None (occurrence: None)
  Receive Date: 20040818
  Receipt Date: 20031117
  Transmission Date: 20050211
  Serious: Yes (Other)
  Sender: FDA-Public Use
  Company Number: US-BRISTOL-MYERS SQUIBB COMPANY-12436937

PATIENT
  Age: 76 Year
  Sex: Male
  Weight: 87 kg

DRUGS (11)
  1. TEQUIN [Suspect]
     Indication: BRONCHITIS
     Route: 042
     Dates: start: 20020101, end: 20020101
  2. TEQUIN [Suspect]
     Indication: INFECTION
     Route: 042
     Dates: start: 20020101, end: 20020101
  3. TEQUIN [Suspect]
     Indication: INFECTION
     Route: 048
     Dates: start: 20020101, end: 20020101
  4. TEQUIN [Suspect]
     Indication: BRONCHITIS
     Route: 048
     Dates: start: 20020101, end: 20020101
  5. AZATHIOPRINE [Concomitant]
  6. GENGRAF [Concomitant]
  7. LIPITOR [Concomitant]
  8. PREDNISONE [Concomitant]
  9. PROTONIX [Concomitant]
  10. TOPROL-XL [Concomitant]
  11. NASACORT [Concomitant]

REACTIONS (1)
  - TENDONITIS [None]
